FAERS Safety Report 19948337 (Version 5)
Quarter: 2022Q2

REPORT INFORMATION
  Report Type: Spontaneous
  Country: US (occurrence: US)
  Receive Date: 20211012
  Receipt Date: 20220421
  Transmission Date: 20220721
  Serious: No
  Sender: FDA-Public Use
  Company Number: US-PFIZER INC-2021649867

PATIENT
  Age: 71 Year
  Sex: Female

DRUGS (2)
  1. IBRANCE [Suspect]
     Active Substance: PALBOCICLIB
     Dosage: 100 MG
  2. IBRANCE [Suspect]
     Active Substance: PALBOCICLIB
     Dosage: 100 MG, (100 MG 3X7 UD)

REACTIONS (15)
  - Fatigue [Recovering/Resolving]
  - Malaise [Recovering/Resolving]
  - Dysstasia [Recovering/Resolving]
  - White blood cell count abnormal [Unknown]
  - Tremor [Recovering/Resolving]
  - Oropharyngeal pain [Unknown]
  - Alopecia [Unknown]
  - Illness [Unknown]
  - Neoplasm progression [Unknown]
  - Oral mucosal blistering [Unknown]
  - Arthralgia [Unknown]
  - Paraesthesia [Unknown]
  - Anaemia of malignant disease [Unknown]
  - Pain in extremity [Unknown]
  - Dizziness [Unknown]
